FAERS Safety Report 9462651 (Version 1)
Quarter: 2013Q3

REPORT INFORMATION
  Report Type: Spontaneous
  Country: GB (occurrence: GB)
  Receive Date: 20130816
  Receipt Date: 20130816
  Transmission Date: 20140515
  Serious: Yes (Other)
  Sender: FDA-Public Use
  Company Number: GB-ELI_LILLY_AND_COMPANY-GB201307006666

PATIENT
  Age: 60 Year
  Sex: Male
  Weight: 105 kg

DRUGS (10)
  1. FORSTEO [Suspect]
     Indication: OSTEOPOROSIS
     Dosage: 20 UG, QD
     Route: 058
     Dates: start: 20130701, end: 20130715
  2. FORSTEO [Suspect]
     Dosage: UNK
     Dates: start: 20130801
  3. TRAMADOL [Concomitant]
  4. WARFARIN [Concomitant]
  5. LORATADINE [Concomitant]
  6. SINVASTATINA [Concomitant]
  7. AMITRIPTYLINE [Concomitant]
  8. THYROXINE [Concomitant]
  9. AMIODARONE [Concomitant]
  10. LORATADINE [Concomitant]

REACTIONS (2)
  - Blood sodium decreased [Not Recovered/Not Resolved]
  - Hypoaesthesia [Unknown]
